FAERS Safety Report 5409486-7 (Version None)
Quarter: 2007Q3

REPORT INFORMATION
  Report Type: 
  Country: None (occurrence: None)
  Receive Date: 20070807
  Receipt Date: 20070807
  Transmission Date: 20080115
  Serious: Yes (Life-Threatening, Hospitalization)
  Sender: FDA-Public Use
  Company Number: None

PATIENT
  Age: 76 Year
  Sex: Female
  Weight: 82.4 kg

DRUGS (3)
  1. TEKTURNA [Suspect]
     Indication: HYPERTENSION
     Dosage: 150 MG DAILY PO  A FEW WEEKS
     Route: 048
  2. ZESTORETIC [Suspect]
     Indication: HYPERTENSION
     Dosage: 2 TABLETS DAILY PO
     Route: 048
  3. DIOVAN [Concomitant]

REACTIONS (4)
  - DYSPNOEA [None]
  - PHARYNGEAL OEDEMA [None]
  - SALIVARY HYPERSECRETION [None]
  - SWOLLEN TONGUE [None]
